FAERS Safety Report 5213867-4 (Version None)
Quarter: 2007Q1

REPORT INFORMATION
  Report Type: 
  Country: None (occurrence: None)
  Receive Date: 20070117
  Receipt Date: 20070109
  Transmission Date: 20070707
  Serious: Yes (Hospitalization, Other)
  Sender: FDA-Public Use
  Company Number: 2007SP000474

PATIENT
  Age: 65 Year
  Sex: Female

DRUGS (2)
  1. PEG-INTRON [Suspect]
     Indication: HEPATITIS C
     Dosage: SC
     Route: 058
     Dates: start: 20061211
  2. RIBAVIRIN [Suspect]
     Indication: HEPATITIS C
     Dosage: PO
     Route: 048
     Dates: start: 20061211

REACTIONS (5)
  - DEHYDRATION [None]
  - KIDNEY INFECTION [None]
  - NAUSEA [None]
  - RED BLOOD CELL COUNT DECREASED [None]
  - VOMITING [None]
